FAERS Safety Report 16087789 (Version 1)
Quarter: 2019Q1

REPORT INFORMATION
  Report Type: Spontaneous
  Country: FR (occurrence: FR)
  Receive Date: 20190319
  Receipt Date: 20190319
  Transmission Date: 20190418
  Serious: Yes (Hospitalization, Other)
  Sender: FDA-Public Use
  Company Number: FR-ACCORD-113438

PATIENT
  Age: 71 Year
  Sex: Male
  Weight: 83 kg

DRUGS (8)
  1. CORTANCYL [Concomitant]
     Active Substance: PREDNISONE
     Route: 048
     Dates: start: 20180821
  2. EUPRESSYL [Concomitant]
     Active Substance: URAPIDIL
     Dosage: 30 MG
     Route: 048
  3. RAMIPRIL. [Suspect]
     Active Substance: RAMIPRIL
     Indication: HYPERTENSION
     Route: 048
     Dates: end: 20180903
  4. CLARITHROMYCIN/CLARITHROMYCIN LACTOBIONATE [Interacting]
     Active Substance: CLARITHROMYCIN LACTOBIONATE
     Indication: HELICOBACTER GASTRITIS
     Dosage: UNSPECIFIED
     Route: 048
     Dates: start: 20180821, end: 20180903
  5. DIFFU K [Interacting]
     Active Substance: POTASSIUM CHLORIDE
     Indication: PRODUCT USED FOR UNKNOWN INDICATION
     Route: 048
     Dates: end: 20180903
  6. PROGRAF [Interacting]
     Active Substance: TACROLIMUS\TACROLIMUS ANHYDROUS
     Indication: GLOMERULONEPHRITIS MEMBRANOUS
     Dosage: STRENGTH 1 MG
     Route: 048
     Dates: start: 20180821, end: 20180903
  7. LASILIX SPECIAL [Concomitant]
     Active Substance: FUROSEMIDE
     Dosage: STRENGTH 500 MG, SCORED TABLET
     Route: 048
  8. CACIT VITAMIN D3 [Concomitant]
     Active Substance: CALCIUM CARBONATE\CHOLECALCIFEROL
     Route: 048

REACTIONS (2)
  - Hyperkalaemia [Recovered/Resolved]
  - Drug interaction [Unknown]

NARRATIVE: CASE EVENT DATE: 20180831
